FAERS Safety Report 6263496-9 (Version None)
Quarter: 2009Q3

REPORT INFORMATION
  Report Type: 
  Country: None (occurrence: None)
  Receive Date: 20090710
  Receipt Date: 20090327
  Transmission Date: 20100115
  Serious: No
  Sender: FDA-Public Use
  Company Number: A0773645A

PATIENT
  Age: 41 Year

DRUGS (2)
  1. TYKERB [Suspect]
     Indication: DRUG USE FOR UNKNOWN INDICATION
     Dosage: 5TAB PER DAY
     Dates: start: 20090227
  2. CHEMOTHERAPY [Suspect]

REACTIONS (4)
  - DIARRHOEA [None]
  - FATIGUE [None]
  - PARAESTHESIA [None]
  - TONGUE DISORDER [None]
